FAERS Safety Report 20615862 (Version 1)
Quarter: 2022Q1

REPORT INFORMATION
  Report Type: Other
  Country: JP (occurrence: JP)
  Receive Date: 20220321
  Receipt Date: 20220321
  Transmission Date: 20220423
  Serious: Yes (Other)
  Sender: FDA-Public Use
  Company Number: JP-CHUGAI-2022008759

PATIENT
  Age: 72 Year
  Sex: Female
  Weight: 41.5 kg

DRUGS (3)
  1. ATEZOLIZUMAB [Suspect]
     Active Substance: ATEZOLIZUMAB
     Indication: Small cell lung cancer extensive stage
     Dosage: 1200 MILLIGRAM
     Route: 041
     Dates: start: 20201001, end: 20210106
  2. CARBOPLATIN [Concomitant]
     Active Substance: CARBOPLATIN
     Indication: Small cell lung cancer extensive stage
     Dosage: 450 MILLIGRAM
     Route: 041
     Dates: start: 20201001, end: 20201210
  3. ETOPOSIDE [Concomitant]
     Active Substance: ETOPOSIDE
     Indication: Small cell lung cancer extensive stage
     Dosage: 134 MILLIGRAM
     Route: 041
     Dates: start: 20201001, end: 20201211

REACTIONS (2)
  - Aspartate aminotransferase increased [Recovered/Resolved]
  - Purulence [Unknown]

NARRATIVE: CASE EVENT DATE: 20201006
